FAERS Safety Report 8882760 (Version 2)
Quarter: 2012Q4

REPORT INFORMATION
  Report Type: 
  Country: DE (occurrence: DE)
  Receive Date: 20121103
  Receipt Date: 20121120
  Transmission Date: 20130627
  Serious: Yes (Life-Threatening, Other)
  Sender: FDA-Public Use
  Company Number: DE-BRISTOL-MYERS SQUIBB COMPANY-17011651

PATIENT
  Age: 19 Month
  Sex: Male
  Weight: 10.5 kg

DRUGS (12)
  1. SPRYCEL [Suspect]
     Indication: ACUTE LYMPHOCYTIC LEUKAEMIA
     Dosage: int on 21-Sep-2012; restarted on 111-Oct-2012 with day 22
     Route: 048
     Dates: start: 20120704
  2. MESNA [Suspect]
     Dates: start: 20120604
  3. IMATINIB MESILATE [Suspect]
     Route: 048
     Dates: end: 20120704
  4. CYCLOPHOSPHAMIDE [Suspect]
     Dates: start: 20120604
  5. ARA-C [Suspect]
     Dosage: 6,9,13,16,17-Jun-2012
     Dates: start: 20120606
  6. THIOGUANINE [Suspect]
     Dosage: 04, 06,09, 13, 16, and 17-Jun-2012
     Route: 048
     Dates: start: 20120604
  7. METHOTREXATE [Suspect]
     Dates: start: 20120704
  8. PREDNISOLONE [Suspect]
     Dates: start: 20120911
  9. VINCRISTINE [Suspect]
     Dosage: 18-Sep, 11Oct and 12Oct-2012
     Dates: start: 20120911
  10. DAUNORUBICIN [Suspect]
     Dosage: 18-Sep, 11Oct and 12Oct-2012
     Dates: start: 20120911
  11. ASPARAGINASE [Suspect]
     Dosage: 1 DF= 470 U
     Dates: start: 20120911
  12. MERCAPTOPURINE [Suspect]
     Dates: start: 20120704

REACTIONS (2)
  - Interstitial lung disease [Recovering/Resolving]
  - Off label use [Unknown]
